FAERS Safety Report 15186494 (Version 2)
Quarter: 2019Q1

REPORT INFORMATION
  Report Type: Report from Study
  Country: US (occurrence: US)
  Receive Date: 20180723
  Receipt Date: 20190130
  Transmission Date: 20190417
  Serious: No
  Sender: FDA-Public Use
  Company Number: US-EXELIXIS-CABO-18011962

PATIENT
  Age: 56 Year
  Sex: Male

DRUGS (7)
  1. AMLODIPINE [Concomitant]
     Active Substance: AMLODIPINE BESYLATE
  2. CABOMETYX [Suspect]
     Active Substance: CABOZANTINIB S-MALATE
     Indication: RENAL NEOPLASM
     Dosage: 40 MG, QD
     Route: 048
     Dates: start: 20170920
  3. SIMVASTATIN. [Concomitant]
     Active Substance: SIMVASTATIN
  4. CABOMETYX [Suspect]
     Active Substance: CABOZANTINIB S-MALATE
     Dosage: 40 MG, 4 DAYS A WEEK
     Route: 048
  5. XGEVA [Concomitant]
     Active Substance: DENOSUMAB
  6. XARELTO [Concomitant]
     Active Substance: RIVAROXABAN
  7. LISINOPRIL. [Concomitant]
     Active Substance: LISINOPRIL

REACTIONS (4)
  - Dry mouth [Unknown]
  - Oropharyngeal pain [Unknown]
  - Oral pain [Unknown]
  - Diarrhoea [Not Recovered/Not Resolved]

NARRATIVE: CASE EVENT DATE: 201801
